FAERS Safety Report 6087691-7 (Version None)
Quarter: 2009Q1

REPORT INFORMATION
  Report Type: 
  Country: None (occurrence: None)
  Receive Date: 20090223
  Receipt Date: 20090121
  Transmission Date: 20090719
  Serious: Yes (Hospitalization)
  Sender: FDA-Public Use
  Company Number: DE-ROCHE-607873

PATIENT
  Sex: Male
  Weight: 96 kg

DRUGS (1)
  1. VALGANCICLOVIR HCL [Suspect]
     Route: 048
     Dates: start: 20080811

REACTIONS (1)
  - POSTOPERATIVE WOUND INFECTION [None]
